FAERS Safety Report 18465213 (Version 1)
Quarter: 2020Q4

REPORT INFORMATION
  Report Type: Spontaneous
  Country: DE (occurrence: DE)
  Receive Date: 20201105
  Receipt Date: 20201105
  Transmission Date: 20210114
  Serious: Yes (Life-Threatening, Hospitalization, Other)
  Sender: FDA-Public Use
  Company Number: DE-DRREDDYS-USA/GER/20/0128599

PATIENT
  Age: 81 Year
  Sex: Male
  Weight: 93 kg

DRUGS (8)
  1. TENSOFLUX [Interacting]
     Active Substance: AMILORIDE\BENDROFLUMETHIAZIDE
     Indication: PRODUCT USED FOR UNKNOWN INDICATION
  2. ALLOPURINOL. [Interacting]
     Active Substance: ALLOPURINOL
     Indication: PRODUCT USED FOR UNKNOWN INDICATION
  3. METFORMIN [Concomitant]
     Active Substance: METFORMIN HYDROCHLORIDE
     Indication: DIABETES MELLITUS
  4. ALNA [Interacting]
     Active Substance: TAMSULOSIN HYDROCHLORIDE
     Indication: BENIGN PROSTATIC HYPERPLASIA
  5. OMNIC 0.4 MG [Interacting]
     Active Substance: TAMSULOSIN HYDROCHLORIDE
     Indication: BENIGN PROSTATIC HYPERPLASIA
  6. PHENPROCOUMON 3 MG [Concomitant]
     Indication: ANTICOAGULANT THERAPY
  7. RAMIPRIL 2.5 MG [Suspect]
     Active Substance: RAMIPRIL
     Indication: HYPERTENSION
  8. METOPROLOL SUCCINATE 47.5 MG [Concomitant]
     Indication: HYPERTENSION

REACTIONS (4)
  - Stevens-Johnson syndrome [Recovered/Resolved]
  - Self-medication [Recovered/Resolved]
  - Toxic epidermal necrolysis [Recovered/Resolved]
  - Drug interaction [Recovered/Resolved]
